FAERS Safety Report 9833526 (Version 2)
Quarter: 2014Q2

REPORT INFORMATION
  Report Type: Spontaneous
  Country: GB (occurrence: GB)
  Receive Date: 20140122
  Receipt Date: 20140415
  Transmission Date: 20141212
  Serious: Yes (Death, Hospitalization, Other)
  Sender: FDA-Public Use
  Company Number: GB-JNJFOC-20140108273

PATIENT
  Age: 72 Year
  Sex: Male
  Weight: 74 kg

DRUGS (17)
  1. PARACETAMOL [Suspect]
     Route: 048
  2. PARACETAMOL [Suspect]
     Indication: PAIN
     Route: 048
     Dates: start: 20130822, end: 20130828
  3. TAZOCIN [Suspect]
     Indication: URINARY TRACT INFECTION
     Dosage: 8-HOURLY
     Route: 042
     Dates: start: 20130822, end: 20130828
  4. ALLOPURINOL [Concomitant]
     Indication: GOUT
     Route: 065
  5. BISOPROLOL [Concomitant]
     Indication: PRODUCT USED FOR UNKNOWN INDICATION
     Route: 065
  6. CANDESARTAN [Concomitant]
     Indication: PRODUCT USED FOR UNKNOWN INDICATION
     Route: 065
  7. COLCHICINE [Concomitant]
     Indication: GOUT
     Route: 065
  8. DIGOXIN [Concomitant]
     Indication: PRODUCT USED FOR UNKNOWN INDICATION
     Route: 065
  9. FINASTERIDE [Concomitant]
     Indication: PRODUCT USED FOR UNKNOWN INDICATION
     Route: 065
  10. FUROSEMIDE [Concomitant]
     Indication: PRODUCT USED FOR UNKNOWN INDICATION
     Route: 065
  11. IBUPROFEN [Concomitant]
     Indication: PAIN
     Route: 065
     Dates: start: 201308, end: 201308
  12. IBUPROFEN [Concomitant]
     Indication: GOUT
     Route: 065
     Dates: start: 201308, end: 201308
  13. PRAVASTATIN [Concomitant]
     Indication: PRODUCT USED FOR UNKNOWN INDICATION
     Route: 065
  14. SPIRONOLACTONE [Concomitant]
     Indication: PRODUCT USED FOR UNKNOWN INDICATION
     Route: 065
  15. TAMSULOSIN [Concomitant]
     Indication: PRODUCT USED FOR UNKNOWN INDICATION
     Route: 065
  16. TRIMETHOPRIM [Concomitant]
     Indication: URINARY TRACT INFECTION
     Route: 065
  17. WARFARIN [Concomitant]
     Indication: ANTICOAGULANT THERAPY
     Route: 065

REACTIONS (3)
  - Hepatitis acute [Fatal]
  - Cardiac arrest [Not Recovered/Not Resolved]
  - Convulsion [Not Recovered/Not Resolved]
